FAERS Safety Report 25492851 (Version 5)
Quarter: 2025Q4

REPORT INFORMATION
  Report Type: Report from Study
  Country: CO (occurrence: CO)
  Receive Date: 20250630
  Receipt Date: 20251226
  Transmission Date: 20260118
  Serious: Yes (Other)
  Sender: TAKEDA
  Company Number: CO-TAKEDA-2023TUS063386

PATIENT
  Age: 32 Year
  Sex: Male
  Weight: 79 kg

DRUGS (1)
  1. VEDOLIZUMAB [Suspect]
     Active Substance: VEDOLIZUMAB
     Indication: Colitis ulcerative
     Dosage: 300 MILLIGRAM

REACTIONS (11)
  - Parasitic gastroenteritis [Unknown]
  - Treatment noncompliance [Unknown]
  - Pain [Unknown]
  - Frequent bowel movements [Unknown]
  - Weight increased [Unknown]
  - Discouragement [Unknown]
  - Hypersomnia [Unknown]
  - Product availability issue [Unknown]
  - Vomiting [Unknown]
  - Fatigue [Unknown]
  - Pyrexia [Unknown]

NARRATIVE: CASE EVENT DATE: 20230616
